FAERS Safety Report 15702537 (Version 1)
Quarter: 2018Q4

REPORT INFORMATION
  Report Type: Other
  Country: PL (occurrence: PL)
  Receive Date: 20181210
  Receipt Date: 20181210
  Transmission Date: 20190205
  Serious: Yes (Other)
  Sender: FDA-Public Use
  Company Number: PL-APOTEX-2018AP025950

PATIENT
  Sex: Female

DRUGS (2)
  1. ESCITALOPRAM [Suspect]
     Active Substance: ESCITALOPRAM OXALATE
     Indication: DEPRESSION
     Dosage: 37.5 MG, QD
     Route: 065
  2. TIANEPTINE [Concomitant]
     Active Substance: TIANEPTINE
     Indication: DEPRESSION
     Dosage: 10 MG, QD
     Route: 065

REACTIONS (3)
  - Drug effect incomplete [Unknown]
  - Learning disorder [Unknown]
  - Mental impairment [Unknown]
